FAERS Safety Report 8092792-8 (Version None)
Quarter: 2012Q1

REPORT INFORMATION
  Report Type: 
  Country: None (occurrence: None)
  Receive Date: 20120128
  Receipt Date: 20110812
  Transmission Date: 20120608
  Serious: No
  Sender: FDA-Public Use
  Company Number: US-ABBOTT-11P-163-0846188-00

PATIENT
  Age: 50 Year
  Sex: Male

DRUGS (8)
  1. CELEBREX [Concomitant]
     Indication: ARTHRITIS
     Dosage: 200 MILLIGRAMS, DAILY
  2. VITAMIN E [Concomitant]
     Indication: VITAMIN E DEFICIENCY
  3. VITAMIN D [Concomitant]
     Indication: VITAMIN D DEFICIENCY
  4. HUMIRA [Suspect]
     Indication: CROHN'S DISEASE
     Dosage: LOADING DOSE
     Route: 058
     Dates: start: 20110729, end: 20110729
  5. PENTASA [Concomitant]
     Indication: CROHN'S DISEASE
     Dosage: 3000 MILLIGRAMS, DAILY
  6. ASCORBIC ACID [Concomitant]
     Indication: VITAMIN C DEFICIENCY
  7. CALCIUM [Concomitant]
     Indication: CALCIUM DEFICIENCY
  8. HUMIRA [Suspect]
     Dosage: SECOND LODING DOSE
     Dates: start: 20110812

REACTIONS (4)
  - HEADACHE [None]
  - PAIN IN EXTREMITY [None]
  - INJECTION SITE HAEMORRHAGE [None]
  - DIZZINESS [None]
